FAERS Safety Report 13950510 (Version 1)
Quarter: 2017Q3

REPORT INFORMATION
  Report Type: Spontaneous
  Country: US (occurrence: US)
  Receive Date: 20170908
  Receipt Date: 20170908
  Transmission Date: 20171128
  Serious: No
  Sender: FDA-Public Use
  Company Number: US-ROCHE-1131251

PATIENT
  Sex: Male

DRUGS (13)
  1. LEVAQUIN [Concomitant]
     Active Substance: LEVOFLOXACIN
  2. TYLENOL [Concomitant]
     Active Substance: ACETAMINOPHEN
  3. BENADRYL [Concomitant]
     Active Substance: DIPHENHYDRAMINE HYDROCHLORIDE
  4. AMBIEN [Concomitant]
     Active Substance: ZOLPIDEM TARTRATE
  5. DECADRON [Concomitant]
     Active Substance: DEXAMETHASONE
  6. CYTOXAN [Concomitant]
     Active Substance: CYCLOPHOSPHAMIDE
  7. RITUXAN [Suspect]
     Active Substance: RITUXIMAB
     Indication: NON-HODGKIN^S LYMPHOMA
     Route: 042
     Dates: start: 20010201, end: 20030820
  8. PREDNISONE. [Concomitant]
     Active Substance: PREDNISONE
  9. ANZEMET [Concomitant]
     Active Substance: DOLASETRON MESYLATE
  10. CYCLOPHOSPHAMIDE. [Concomitant]
     Active Substance: CYCLOPHOSPHAMIDE
  11. PREDNISONE. [Concomitant]
     Active Substance: PREDNISONE
  12. HYDROXYDAUNORUBICIN [Concomitant]
     Active Substance: DOXORUBICIN
  13. ONCOVIN [Concomitant]
     Active Substance: VINCRISTINE SULFATE

REACTIONS (5)
  - Diarrhoea [Recovered/Resolved]
  - Haematuria [Unknown]
  - Vomiting [Unknown]
  - Nausea [Unknown]
  - Constipation [Recovered/Resolved]
